FAERS Safety Report 4876044-2 (Version None)
Quarter: 2005Q4

REPORT INFORMATION
  Report Type: 
  Country: None (occurrence: None)
  Receive Date: 20051206
  Receipt Date: 20050811
  Transmission Date: 20060501
  Serious: No
  Sender: FDA-Public Use
  Company Number: US_0508120867

PATIENT
  Sex: Female
  Weight: 62 kg

DRUGS (3)
  1. CYMBALTA [Suspect]
     Indication: DEPRESSION
  2. CYMBALTA [Suspect]
     Indication: FATIGUE
  3. LIBRIUM [Concomitant]

REACTIONS (6)
  - AKINESIA [None]
  - FACE OEDEMA [None]
  - HEART RATE IRREGULAR [None]
  - HYPERTENSION [None]
  - SUICIDAL IDEATION [None]
  - URTICARIA [None]
